FAERS Safety Report 4754131-7 (Version None)
Quarter: 2005Q3

REPORT INFORMATION
  Report Type: 
  Country: None (occurrence: None)
  Receive Date: 20050825
  Receipt Date: 20041202
  Transmission Date: 20060218
  Serious: Yes (Other)
  Sender: FDA-Public Use
  Company Number: HQWYE803907DEC04

PATIENT
  Age: 5 Year
  Sex: Male
  Weight: 20.88 kg

DRUGS (1)
  1. CHILDREN'S ADVIL [Suspect]
     Indication: PYREXIA
     Dosage: 1/2 TEASPOON ONCE, ORAL
     Route: 048
     Dates: start: 20041202, end: 20041202

REACTIONS (2)
  - RETCHING [None]
  - VOMITING [None]
